FAERS Safety Report 15316417 (Version 1)
Quarter: 2018Q3

REPORT INFORMATION
  Report Type: Spontaneous
  Country: ES (occurrence: ES)
  Receive Date: 20180824
  Receipt Date: 20180824
  Transmission Date: 20181010
  Serious: Yes (Hospitalization, Other)
  Sender: FDA-Public Use
  Company Number: ES-PFIZER INC-2018337277

PATIENT
  Age: 79 Year
  Sex: Male

DRUGS (2)
  1. EPLERENONE. [Concomitant]
     Active Substance: EPLERENONE
     Dosage: 25 MG, 1X/DAY
     Route: 048
     Dates: start: 20180430, end: 20180515
  2. DAPTOMYCIN. [Suspect]
     Active Substance: DAPTOMYCIN
     Indication: ENDOCARDITIS
     Dosage: 700 MG, 1X/DAY
     Route: 042
     Dates: start: 20180503, end: 20180508

REACTIONS (1)
  - Acute interstitial pneumonitis [Recovered/Resolved]

NARRATIVE: CASE EVENT DATE: 20180508
